FAERS Safety Report 4609126-0 (Version None)
Quarter: 2005Q2

REPORT INFORMATION
  Report Type: 
  Country: None (occurrence: None)
  Receive Date: 20050301
  Receipt Date: 20041008
  Transmission Date: 20051028
  Serious: Yes (Hospitalization)
  Sender: FDA-Public Use
  Company Number: 1678

PATIENT
  Age: 74 Year
  Sex: Male

DRUGS (3)
  1. AVINZA [Suspect]
     Indication: PAIN
     Dates: end: 20040812
  2. ACETAMINOPHEN AND CODEINE PHOSPHATE [Concomitant]
  3. POTASSIUM CHLORIDE [Concomitant]

REACTIONS (2)
  - CARDIAC FAILURE [None]
  - RENAL FAILURE [None]
